FAERS Safety Report 6180243-X (Version None)
Quarter: 2009Q2

REPORT INFORMATION
  Report Type: 
  Country: None (occurrence: None)
  Receive Date: 20090504
  Receipt Date: 20090420
  Transmission Date: 20091009
  Serious: Yes (Hospitalization)
  Sender: FDA-Public Use
  Company Number: 2009-01517

PATIENT
  Age: 63 Year
  Sex: Female
  Weight: 65.8 kg

DRUGS (21)
  1. VELCADE [Suspect]
     Indication: RENAL TRANSPLANT
     Dosage: 1.3 MG/M2
     Dates: start: 20090303, end: 20090313
  2. THYMOGLOBULIN [Suspect]
     Indication: RENAL TRANSPLANT
     Dosage: 100 MG
     Dates: start: 20090303, end: 20090312
  3. PREDNISONE [Suspect]
     Indication: RENAL TRANSPLANT
     Dosage: 5 MG
     Dates: start: 20090306, end: 20090417
  4. TACROLIMUS [Suspect]
     Indication: RENAL TRANSPLANT
     Dosage: 4 MG
     Dates: start: 20090306, end: 20090417
  5. MYCOPHENOLATE MOFETIL [Suspect]
     Indication: RENAL TRANSPLANT
     Dosage: 2 G
     Dates: start: 20090303, end: 20090417
  6. METHYLPREDNISOLONE [Suspect]
     Indication: RENAL TRANSPLANT
     Dosage: 500 MG ; 250 MG ; 125 MG
     Dates: start: 20090303, end: 20090303
  7. METHYLPREDNISOLONE [Suspect]
     Indication: RENAL TRANSPLANT
     Dosage: 500 MG ; 250 MG ; 125 MG
     Dates: start: 20090304, end: 20090304
  8. METHYLPREDNISOLONE [Suspect]
     Indication: RENAL TRANSPLANT
     Dosage: 500 MG ; 250 MG ; 125 MG
     Dates: start: 20090305, end: 20090305
  9. CALCIUM WITH VITAMIN D (ERGOCALCIFEROL, CALCIUM SODIUM LACTATE, CALCIU [Concomitant]
  10. COREG [Concomitant]
  11. PROGRAF [Concomitant]
  12. PRILOSEC [Concomitant]
  13. LEVEMIR [Concomitant]
  14. HUMALOG [Concomitant]
  15. LEXAPRO [Concomitant]
  16. LIPITOR [Concomitant]
  17. VALCYTE [Concomitant]
  18. ASPIRIN [Concomitant]
  19. NYSTATIN [Concomitant]
  20. BACTRIM [Concomitant]
  21. CLINDAMYCIN HCL [Concomitant]

REACTIONS (16)
  - ABDOMINAL PAIN [None]
  - BLOOD CREATININE INCREASED [None]
  - BLOOD PRESSURE DECREASED [None]
  - BLOOD UREA INCREASED [None]
  - CELLULITIS [None]
  - CHILLS [None]
  - DIARRHOEA [None]
  - DIZZINESS [None]
  - ERYTHEMA [None]
  - HAEMATOCRIT DECREASED [None]
  - HAEMOGLOBIN DECREASED [None]
  - LEUKOCYTOSIS [None]
  - NAUSEA [None]
  - RETCHING [None]
  - SCAR PAIN [None]
  - VOMITING [None]
